FAERS Safety Report 19299236 (Version 1)
Quarter: 2021Q2

REPORT INFORMATION
  Report Type: Spontaneous
  Country: ZA (occurrence: ZA)
  Receive Date: 20210524
  Receipt Date: 20210524
  Transmission Date: 20210717
  Serious: Yes (Other)
  Sender: FDA-Public Use
  Company Number: ZA-PFIZER INC-2021581702

PATIENT
  Age: 62 Year
  Weight: 62.4 kg

DRUGS (3)
  1. AZATHIOPRINE. [Suspect]
     Active Substance: AZATHIOPRINE
  2. METHOTREXATE. [Suspect]
     Active Substance: METHOTREXATE
     Dosage: 20 MG, WEEKLY
     Dates: start: 201811, end: 202001
  3. LEFLUNOMIDE. [Suspect]
     Active Substance: LEFLUNOMIDE
     Dosage: 20 MG, DAILY
     Dates: start: 202008, end: 202102

REACTIONS (5)
  - Rheumatoid arthritis [Unknown]
  - Physical disability [Unknown]
  - Pneumonitis [Unknown]
  - Arthropathy [Unknown]
  - Polyarthritis [Unknown]

NARRATIVE: CASE EVENT DATE: 2021
